FAERS Safety Report 16705361 (Version 1)
Quarter: 2019Q3

REPORT INFORMATION
  Report Type: Spontaneous
  Country: CH (occurrence: CH)
  Receive Date: 20190815
  Receipt Date: 20190815
  Transmission Date: 20191004
  Serious: Yes (Hospitalization, Disabling)
  Sender: FDA-Public Use
  Company Number: CH-BEH-2019105593

PATIENT
  Age: 47 Year
  Sex: Male
  Weight: 86 kg

DRUGS (4)
  1. GLIVEC [Suspect]
     Active Substance: IMATINIB MESYLATE
     Dosage: 1400 MILLIGRAM, QD
     Route: 048
     Dates: start: 20160201, end: 20170411
  2. PRIVIGEN [Suspect]
     Active Substance: HUMAN IMMUNOGLOBULIN G
     Indication: ALLOGENIC STEM CELL TRANSPLANTATION
     Dosage: 20 GRAM, QMT
     Route: 041
     Dates: start: 201605, end: 20161114
  3. SANDIMMUN NEORAL [Suspect]
     Active Substance: CYCLOSPORINE
     Indication: ALLOGENIC STEM CELL TRANSPLANTATION
     Dosage: 4 MILLIGRAM/KILOGRAM, QD
     Route: 048
     Dates: start: 20151027, end: 201602
  4. GLIVEC [Suspect]
     Active Substance: IMATINIB MESYLATE
     Indication: ALLOGENIC STEM CELL TRANSPLANTATION
     Dosage: 400 MILLIGRAM, QD
     Route: 048
     Dates: start: 20150720, end: 20151209

REACTIONS (2)
  - Monoparesis [Recovered/Resolved with Sequelae]
  - Progressive multifocal leukoencephalopathy [Recovered/Resolved with Sequelae]

NARRATIVE: CASE EVENT DATE: 201703
